FAERS Safety Report 7278488-0 (Version None)
Quarter: 2011Q1

REPORT INFORMATION
  Report Type: 
  Country: None (occurrence: None)
  Receive Date: 20110207
  Receipt Date: 20110202
  Transmission Date: 20110831
  Serious: Yes (Death)
  Sender: FDA-Public Use
  Company Number: FR-ASTRAZENECA-2011SE06283

PATIENT
  Age: 20 Month
  Sex: Male
  Weight: 10 kg

DRUGS (22)
  1. SOLU-MEDROL [Suspect]
     Route: 042
     Dates: start: 20101223, end: 20101223
  2. CELLCEPT [Suspect]
     Route: 042
     Dates: start: 20101223, end: 20101223
  3. COROTROPE [Suspect]
     Route: 042
     Dates: start: 20101224
  4. FLAGYL [Suspect]
     Route: 042
     Dates: start: 20101224, end: 20101224
  5. PERFALGAN [Suspect]
     Route: 042
     Dates: start: 20101223, end: 20101224
  6. VIALEBEX [Suspect]
     Route: 042
     Dates: start: 20101223, end: 20101224
  7. SIMULECT [Suspect]
     Indication: PROPHYLAXIS
     Route: 042
     Dates: start: 20101223, end: 20101223
  8. NORADRENALINE [Suspect]
     Route: 042
     Dates: start: 20101223, end: 20101224
  9. ROCEPHIN [Suspect]
     Route: 042
     Dates: start: 20101223
  10. HYPNOVEL [Suspect]
     Indication: ANAESTHESIA
     Route: 042
     Dates: start: 20101223, end: 20101223
  11. TRACRIUM [Suspect]
     Route: 042
     Dates: start: 20101223, end: 20101223
  12. ADRENALINE [Suspect]
     Route: 042
     Dates: start: 20101223, end: 20101223
  13. LASIX [Suspect]
     Route: 042
     Dates: start: 20101223, end: 20101223
  14. SUFENTA PRESERVATIVE FREE [Suspect]
     Indication: ANAESTHESIA
     Route: 042
     Dates: start: 20101223, end: 20101223
  15. ATROPINE [Suspect]
     Route: 042
     Dates: start: 20101223, end: 20101223
  16. VENTOLIN [Suspect]
     Route: 042
     Dates: start: 20101223, end: 20101223
  17. KETAMINE [Suspect]
     Route: 042
     Dates: start: 20101224, end: 20101224
  18. NEXIUM [Suspect]
     Route: 048
     Dates: start: 20101223, end: 20101223
  19. SEVOFLURANE [Suspect]
     Route: 055
     Dates: start: 20101223, end: 20101223
  20. BACTRIM [Suspect]
     Route: 042
     Dates: start: 20101223
  21. CALCIPARINE [Suspect]
     Route: 058
     Dates: start: 20101223, end: 20101223
  22. MORPHINE [Suspect]
     Route: 042
     Dates: start: 20101223

REACTIONS (3)
  - CARDIAC FAILURE [None]
  - ACUTE PULMONARY OEDEMA [None]
  - RESPIRATORY FAILURE [None]
